FAERS Safety Report 9469349 (Version 3)
Quarter: 2013Q4

REPORT INFORMATION
  Report Type: Spontaneous
  Country: US (occurrence: None)
  Receive Date: 20130815
  Receipt Date: 20131015
  Transmission Date: 20140711
  Serious: Yes (Hospitalization)
  Sender: FDA-Public Use
  Company Number: AUR-APL-2013-06185

PATIENT
  Age: 68 Year
  Sex: Male
  Weight: 134.9 kg

DRUGS (12)
  1. HYDROCHLOROTHIAZIDE [Suspect]
     Indication: HYPERTENSION
     Dosage: 25 MG (25 MG, 1 IN 1 D), ORAL
     Route: 048
     Dates: start: 200301, end: 20130716
  2. LISINOPRIL [Suspect]
     Indication: HYPERTENSION
     Dosage: 40 MG, 1 IN 1 D
     Route: 048
     Dates: start: 200301, end: 20130716
  3. SIMVASTATIN [Suspect]
     Indication: DYSLIPIDAEMIA
     Dosage: QHS
     Route: 048
     Dates: start: 200301
  4. FUROSEMIDE [Suspect]
     Indication: OEDEMA
     Dosage: 20 MG, 1 IN 1 D
     Route: 048
     Dates: start: 200301, end: 20130716
  5. NEXIUM (ESOMEPRAZOLE MAGNESIUM) [Suspect]
     Indication: PRODUCT USED FOR UNKNOWN INDICATION
     Dosage: 20 MG, 1 IN 1 D
     Route: 048
     Dates: start: 20130507, end: 20130716
  6. INSULIN GLARGINE (INSULIN GLARGINE) [Concomitant]
  7. OMEPRAZOLE (OMEPRAZOLE) [Concomitant]
  8. OXYBUTYNIN (OXYBUTYNIN) [Concomitant]
  9. CIALIS (TADALAFIL) [Concomitant]
  10. CINNAMON (CINNAMOMUM VERUM) [Concomitant]
  11. PERCOCET (TYLOX /00446701/) [Concomitant]
  12. ASPIRIN (ACETYLSALICYLIC ACID) [Concomitant]

REACTIONS (13)
  - Renal failure acute [None]
  - Non-cardiac chest pain [None]
  - Nausea [None]
  - Hiccups [None]
  - Dehydration [None]
  - Anion gap increased [None]
  - Blood bicarbonate decreased [None]
  - Blood glucose increased [None]
  - Blood sodium decreased [None]
  - Carbon dioxide decreased [None]
  - Electrocardiogram ST segment abnormal [None]
  - Glycosylated haemoglobin increased [None]
  - Dyspnoea [None]
